FAERS Safety Report 14111745 (Version 1)
Quarter: 2017Q4

REPORT INFORMATION
  Report Type: Spontaneous
  Country: US (occurrence: None)
  Receive Date: 20171020
  Receipt Date: 20171020
  Transmission Date: 20180321
  Serious: Yes (Hospitalization, Other)
  Sender: FDA-Public Use
  Company Number: None

PATIENT
  Sex: Female

DRUGS (1)
  1. PROLIA [Suspect]
     Active Substance: DENOSUMAB
     Indication: OSTEOPOROSIS
     Dosage: FREQUENCY - Q6MO
     Route: 058
     Dates: start: 201604

REACTIONS (4)
  - Fall [None]
  - Therapy cessation [None]
  - Hip fracture [None]
  - Pneumonia [None]
